FAERS Safety Report 20687751 (Version 1)
Quarter: 2022Q2

REPORT INFORMATION
  Report Type: Spontaneous
  Country: NO (occurrence: NO)
  Receive Date: 20220408
  Receipt Date: 20220408
  Transmission Date: 20220720
  Serious: Yes (Hospitalization, Other)
  Sender: FDA-Public Use
  Company Number: None

PATIENT
  Age: 69 Year
  Sex: Female

DRUGS (9)
  1. FLUOROURACIL [Interacting]
     Active Substance: FLUOROURACIL
     Indication: Pancreatic carcinoma metastatic
     Dosage: DURATION : 1 DAY
     Route: 065
     Dates: start: 202202, end: 202202
  2. IRINOTECAN [Interacting]
     Active Substance: IRINOTECAN
     Indication: Pancreatic carcinoma metastatic
     Dosage: DURATION :1 DAY
     Route: 065
     Dates: start: 202202, end: 202202
  3. OXALIPLATIN [Interacting]
     Active Substance: OXALIPLATIN
     Indication: Pancreatic carcinoma metastatic
     Dosage: DURATION 1DAY
     Route: 065
     Dates: start: 202202, end: 202202
  4. ELIQUIS [Interacting]
     Active Substance: APIXABAN
     Indication: Pulmonary embolism
     Dosage: UNIT DOSE: 5 MG, STRENGTH: 5 MG, FREQUENCY TIME 12 HRS, DURATION 62 DAYS
     Route: 048
     Dates: start: 20220103, end: 20220305
  5. AKYNZEO (NETUPITANT\PALONOSETRON) [Interacting]
     Active Substance: NETUPITANT\PALONOSETRON
     Indication: Nausea
     Dosage: GIVEN THE FIRST DAY WITH THE CHEMOTHERAPY?FOR ACTIVE INGREDIENT NETUPITANT THE STRENGTH IS 300 MILLI
     Route: 048
     Dates: start: 202202, end: 202202
  6. JARDIANCE [Concomitant]
     Active Substance: EMPAGLIFLOZIN
     Indication: Diabetes mellitus
     Dosage: UNIT DOSE: 10 MG, STRENGTH: 10 MG, FREQUENCY TIME 1 DAY
     Route: 048
     Dates: start: 2021
  7. DEXAMETHASONE [Concomitant]
     Active Substance: DEXAMETHASONE
     Indication: Nausea
     Dosage: GIVEN THE FIRST THREE DAYS OF THE CURE WITH CHEMOTHERAPY (12 MG + 8 MG + 8 MG), DURATION 3 DAYS
     Dates: start: 202202, end: 202202
  8. IMOVANE [Concomitant]
     Active Substance: ZOPICLONE
     Indication: Sleep disorder
     Dosage: VESPER, UNIT DOSE: 7.5 MG, STRENGTH: 7.5 MG, FREQUENCY TIME 1DAY
     Route: 048
     Dates: start: 2021
  9. LEUCOVORIN CALCIUM [Concomitant]
     Active Substance: LEUCOVORIN CALCIUM
     Indication: Pancreatic carcinoma metastatic
     Dosage: DURATION : 1 DAY
     Dates: start: 202202, end: 202202

REACTIONS (2)
  - Drug interaction [Recovering/Resolving]
  - Thrombocytopenia [Recovering/Resolving]

NARRATIVE: CASE EVENT DATE: 20220201
